FAERS Safety Report 8439618-8 (Version None)
Quarter: 2012Q2

REPORT INFORMATION
  Report Type: 
  Country: None (occurrence: None)
  Receive Date: 20120615
  Receipt Date: 20120606
  Transmission Date: 20120825
  Serious: Yes (Death)
  Sender: FDA-Public Use
  Company Number: FR-UCBSA-046120

PATIENT
  Sex: Male

DRUGS (2)
  1. KEPPRA [Suspect]
     Route: 048
  2. TEMODAL [Concomitant]
     Route: 048

REACTIONS (1)
  - DEATH [None]
